FAERS Safety Report 11915667 (Version 2)
Quarter: 2016Q1

REPORT INFORMATION
  Report Type: Report from Study
  Country: US (occurrence: US)
  Receive Date: 20160114
  Receipt Date: 20160202
  Transmission Date: 20160526
  Serious: Yes (Hospitalization, Other)
  Sender: FDA-Public Use
  Company Number: US-GILEAD-2015-0180934

PATIENT
  Age: 66 Year
  Sex: Female

DRUGS (1)
  1. AMBRISENTAN [Suspect]
     Active Substance: AMBRISENTAN
     Indication: PRODUCT USED FOR UNKNOWN INDICATION
     Dosage: 5 MG, QD
     Route: 065
     Dates: start: 20150818

REACTIONS (5)
  - Toe operation [Unknown]
  - Eye operation [Unknown]
  - Vascular operation [Unknown]
  - Localised infection [Unknown]
  - Diabetic foot [Unknown]
